FAERS Safety Report 7462701-0 (Version None)
Quarter: 2011Q2

REPORT INFORMATION
  Report Type: 
  Country: None (occurrence: None)
  Receive Date: 20110506
  Receipt Date: 20101209
  Transmission Date: 20111010
  Serious: Yes (Hospitalization)
  Sender: FDA-Public Use
  Company Number: US-BAYER-201034121NA

PATIENT
  Age: 38 Year
  Sex: Female

DRUGS (11)
  1. YASMIN [Suspect]
     Indication: PRODUCT USED FOR UNKNOWN INDICATION
     Dosage: UNK UNK, QD
     Route: 048
     Dates: start: 20080701
  2. ADVIL LIQUI-GELS [Concomitant]
     Indication: PHLEBITIS
     Dosage: 400 MG, TID
     Dates: start: 20080917
  3. HYOSCYAMINE [Concomitant]
  4. CLONAZEPAM [Concomitant]
     Dosage: 1 MG, HS
     Route: 048
  5. VITAMIN C [Concomitant]
  6. COLAZAL [Concomitant]
  7. YAZ [Suspect]
     Indication: PRODUCT USED FOR UNKNOWN INDICATION
     Route: 048
     Dates: start: 20080701
  8. DROSPIRENONE AND ETHINYL ESTRADIOL [Suspect]
     Dosage: UNK
     Dates: start: 20080701
  9. NEXIUM [Concomitant]
  10. BREATHING MEDICATIONS [Concomitant]
  11. ZOLPIDEM [Concomitant]

REACTIONS (2)
  - PAIN IN EXTREMITY [None]
  - DEEP VEIN THROMBOSIS [None]
